FAERS Safety Report 5708741-0 (Version None)
Quarter: 2008Q2

REPORT INFORMATION
  Report Type: 
  Country: None (occurrence: None)
  Receive Date: 20080417
  Receipt Date: 20080411
  Transmission Date: 20081010
  Serious: Yes (Hospitalization)
  Sender: FDA-Public Use
  Company Number: US-GENENTECH-259283

PATIENT
  Sex: Female
  Weight: 79.8 kg

DRUGS (12)
  1. BEVACIZUMAB [Suspect]
     Indication: MALIGNANT MELANOMA
     Dosage: 850 MG, UNK
     Dates: start: 20080108
  2. ABRAXANE [Suspect]
     Indication: MALIGNANT MELANOMA
     Dosage: 288 MG, UNK
     Dates: start: 20080108
  3. NEURONTIN [Concomitant]
     Indication: NEUROPATHY PERIPHERAL
     Dosage: 100 MG, UNK
     Route: 048
     Dates: start: 20080301, end: 20080301
  4. NEORAL [Concomitant]
     Indication: RENAL TRANSPLANT
     Dosage: 100 MG, UNK
     Route: 048
     Dates: start: 19980101
  5. RAPAMUNE [Concomitant]
     Indication: RENAL TRANSPLANT
     Dosage: 2 MG, UNK
     Route: 048
     Dates: start: 19980101
  6. LABETALOL HCL [Concomitant]
     Indication: HYPERTENSION
     Dosage: 10 MG, UNK
     Route: 048
     Dates: start: 19980101
  7. NORVASC [Concomitant]
     Indication: HYPERTENSION
     Dosage: 5 MG, UNK
     Route: 048
     Dates: start: 19980101
  8. LOVASTATIN [Concomitant]
     Indication: BLOOD CHOLESTEROL INCREASED
     Dosage: 40 MG, UNK
     Route: 048
     Dates: start: 19980101
  9. ROBITUSSIN PRODUCT (UNK INGREDIENTS) [Concomitant]
     Indication: COUGH
     Dosage: 1 TSP, UNK
     Route: 048
     Dates: start: 20080101
  10. ROBITUSSIN PRODUCT (UNK INGREDIENTS) [Concomitant]
     Dosage: 2 TSP, UNK
     Route: 048
     Dates: start: 20080101
  11. ZITHROMAX [Concomitant]
     Indication: NASOPHARYNGITIS
     Dosage: 1 TABLET, UNK
     Route: 048
     Dates: start: 20080101
  12. CONCOMITANT DRUG [Concomitant]
     Indication: COUGH
     Dosage: 1 TABLET, UNK
     Route: 048
     Dates: start: 20080221

REACTIONS (2)
  - RENAL FAILURE ACUTE [None]
  - RENAL FAILURE CHRONIC [None]
